FAERS Safety Report 5262214-0 (Version None)
Quarter: 2007Q1

REPORT INFORMATION
  Report Type: 
  Country: None (occurrence: None)
  Receive Date: 20070308
  Receipt Date: 20070222
  Transmission Date: 20070707
  Serious: No
  Sender: FDA-Public Use
  Company Number: E3810-00686-SPO-FR

PATIENT
  Age: 75 Year
  Sex: Female
  Weight: 90 kg

DRUGS (1)
  1. RABEPRAZOLE SODIUM [Suspect]
     Indication: ABDOMINAL PAIN
     Dosage: 20 MG, ORAL
     Route: 048

REACTIONS (6)
  - BILIARY CYST [None]
  - OEDEMA PERIPHERAL [None]
  - PLEURAL EFFUSION [None]
  - PULMONARY EMBOLISM [None]
  - WEIGHT DECREASED [None]
  - WEIGHT INCREASED [None]
